FAERS Safety Report 24981486 (Version 1)
Quarter: 2025Q1

REPORT INFORMATION
  Report Type: Spontaneous
  Country: US (occurrence: None)
  Receive Date: 20250218
  Receipt Date: 20250218
  Transmission Date: 20250408
  Serious: Yes (Hospitalization)
  Sender: FDA-CTU
  Company Number: None

PATIENT
  Age: 82 Year
  Sex: Male

DRUGS (10)
  1. DEFERASIROX [Suspect]
     Active Substance: DEFERASIROX
     Dosage: FREQUENCY : DAILY;?
     Route: 048
     Dates: start: 20240523
  2. VITAMINS [Concomitant]
     Active Substance: VITAMINS
  3. VITAMIN B12 [Concomitant]
     Active Substance: CYANOCOBALAMIN
  4. ALLOPURINOL [Concomitant]
     Active Substance: ALLOPURINOL
  5. AMIODARONE [Concomitant]
     Active Substance: AMIODARONE
  6. ELIQUIS [Concomitant]
     Active Substance: APIXABAN
  7. LOSARTAN [Concomitant]
     Active Substance: LOSARTAN
  8. METOPROLOL SUCCINATE [Concomitant]
     Active Substance: METOPROLOL SUCCINATE
  9. ROSUVASTATIN [Concomitant]
     Active Substance: ROSUVASTATIN
  10. JARDIANCE [Concomitant]
     Active Substance: EMPAGLIFLOZIN

REACTIONS (2)
  - Viral infection [None]
  - Therapy interrupted [None]

NARRATIVE: CASE EVENT DATE: 20250113
